FAERS Safety Report 25629902 (Version 2)
Quarter: 2025Q3

REPORT INFORMATION
  Report Type: Spontaneous
  Country: US (occurrence: US)
  Receive Date: 20250731
  Receipt Date: 20250829
  Transmission Date: 20251021
  Serious: No
  Sender: TAKEDA
  Company Number: US-TAKEDA-2025TUS066713

PATIENT
  Sex: Female
  Weight: 91 kg

DRUGS (4)
  1. VYVANSE [Suspect]
     Active Substance: LISDEXAMFETAMINE DIMESYLATE
     Indication: Attention deficit hyperactivity disorder
     Dosage: 50 MILLIGRAM, QD
  2. SEROQUEL [Concomitant]
     Active Substance: QUETIAPINE FUMARATE
  3. WELLBUTRIN [Concomitant]
     Active Substance: BUPROPION HYDROCHLORIDE
  4. METHADONE [Concomitant]
     Active Substance: METHADONE HYDROCHLORIDE

REACTIONS (5)
  - Product physical issue [Unknown]
  - Incorrect dose administered [Unknown]
  - Poor quality product administered [Unknown]
  - Dyspepsia [Unknown]
  - Nausea [Unknown]
